FAERS Safety Report 15435390 (Version 2)
Quarter: 2018Q4

REPORT INFORMATION
  Report Type: Spontaneous
  Country: US (occurrence: US)
  Receive Date: 20180927
  Receipt Date: 20181228
  Transmission Date: 20190204
  Serious: No
  Sender: FDA-Public Use
  Company Number: US-INDIVIOR LIMITED-INDV-113446-2018

PATIENT
  Age: 37 Year
  Sex: Male

DRUGS (3)
  1. SUBLOCADE [Suspect]
     Active Substance: BUPRENORPHINE
     Indication: DRUG USE DISORDER
     Dosage: 100 MG, ONE TIME DOSE  (5TH INJECTION)
     Route: 065
     Dates: start: 201809, end: 201809
  2. SUBLOCADE [Suspect]
     Active Substance: BUPRENORPHINE
     Indication: DRUG USE DISORDER
     Dosage: 300 MG QMO (1ST, 2ND, 3RD AND 4TH INJECTIONS)
     Route: 065
     Dates: start: 201805, end: 20180815
  3. SUBLOCADE [Suspect]
     Active Substance: BUPRENORPHINE
     Dosage: 300 MG, QMO (6TH INJECTION)
     Route: 065
     Dates: start: 201810

REACTIONS (3)
  - Constipation [Not Recovered/Not Resolved]
  - Drug withdrawal syndrome [Recovering/Resolving]
  - Drug dependence [Recovered/Resolved]

NARRATIVE: CASE EVENT DATE: 2018
